FAERS Safety Report 6427774-2 (Version None)
Quarter: 2009Q4

REPORT INFORMATION
  Report Type: 
  Country: None (occurrence: None)
  Receive Date: 20091030
  Receipt Date: 20091016
  Transmission Date: 20100525
  Serious: Yes (Death)
  Sender: FDA-Public Use
  Company Number: 2009AC000249

PATIENT
  Age: 81 Year
  Sex: Female

DRUGS (25)
  1. DIGOXIN [Suspect]
     Indication: HEART RATE IRREGULAR
     Dosage: PO
     Route: 048
  2. DIAZEPAM [Concomitant]
  3. WARFARIN SODIUM [Concomitant]
  4. CARVEDILOL [Concomitant]
  5. FUROSEMIDE [Concomitant]
  6. IPRATROPRIUM [Concomitant]
  7. AMOXICILLIN [Concomitant]
  8. ZITHROMAX [Concomitant]
  9. BENZONATATE [Concomitant]
  10. CEPHALEXIN [Concomitant]
  11. KETEK [Concomitant]
  12. PROMETHAZINE [Concomitant]
  13. DOXEPIN HCL [Concomitant]
  14. SKELAXIN [Concomitant]
  15. GLYCOLAX [Concomitant]
  16. CIPROFLOXACIN [Concomitant]
  17. COREG [Concomitant]
  18. SPIRONOLACTONE [Concomitant]
  19. CLOBETASOL PROPIONATE [Concomitant]
  20. POLYETH GLYC [Concomitant]
  21. TRAMADOL HCL [Concomitant]
  22. ACETAMINOPHEN AND HYDROCODONE BITARTRATE [Concomitant]
  23. DOCUSATE SOD [Concomitant]
  24. CELEBREX [Concomitant]
  25. CAPTOPRIL [Concomitant]

REACTIONS (17)
  - ANXIETY [None]
  - BACK PAIN [None]
  - BASAL CELL CARCINOMA [None]
  - CARDIAC MURMUR [None]
  - CARDIOMYOPATHY [None]
  - CHRONIC OBSTRUCTIVE PULMONARY DISEASE [None]
  - CONFUSIONAL STATE [None]
  - DEPRESSED LEVEL OF CONSCIOUSNESS [None]
  - EJECTION FRACTION DECREASED [None]
  - LEFT VENTRICULAR DYSFUNCTION [None]
  - MENTAL STATUS CHANGES [None]
  - MULTIPLE INJURIES [None]
  - PAIN [None]
  - PANCREATITIS [None]
  - ROAD TRAFFIC ACCIDENT [None]
  - THERAPEUTIC AGENT TOXICITY [None]
  - VENTRICULAR FIBRILLATION [None]
